FAERS Safety Report 6294200-6 (Version None)
Quarter: 2009Q3

REPORT INFORMATION
  Report Type: 
  Country: None (occurrence: None)
  Receive Date: 20090803
  Receipt Date: 20090223
  Transmission Date: 20100115
  Serious: No
  Sender: FDA-Public Use
  Company Number: A0769965A

PATIENT
  Sex: Female

DRUGS (1)
  1. NICORETTE WHITE ICE OTC 4MG [Suspect]

REACTIONS (2)
  - APHTHOUS STOMATITIS [None]
  - TONGUE ULCERATION [None]
